FAERS Safety Report 6293289-8 (Version None)
Quarter: 2009Q3

REPORT INFORMATION
  Report Type: 
  Country: None (occurrence: None)
  Receive Date: 20090731
  Receipt Date: 20090722
  Transmission Date: 20100115
  Serious: Yes (Hospitalization)
  Sender: FDA-Public Use
  Company Number: US-ABBOTT-09P-163-0582196-02

PATIENT
  Sex: Male
  Weight: 106.24 kg

DRUGS (4)
  1. RITONAVIR SOFT GELATIN CAPSULES [Suspect]
     Indication: HIV INFECTION
     Route: 048
     Dates: start: 20080807, end: 20090119
  2. RITONAVIR SOFT GELATIN CAPSULES [Suspect]
     Dates: start: 20090121
  3. PREZISTA [Concomitant]
     Indication: HIV INFECTION
     Route: 048
     Dates: start: 20080807, end: 20090119
  4. PREZISTA [Concomitant]
     Dates: start: 20090121

REACTIONS (3)
  - BACK PAIN [None]
  - ESCHERICHIA URINARY TRACT INFECTION [None]
  - NEPHROLITHIASIS [None]
